FAERS Safety Report 10175855 (Version 1)
Quarter: 2014Q2

REPORT INFORMATION
  Report Type: Spontaneous
  Country: PR (occurrence: US)
  Receive Date: 20140516
  Receipt Date: 20140516
  Transmission Date: 20141212
  Serious: No
  Sender: FDA-Public Use
  Company Number: PR-BAYER-2014-072250

PATIENT
  Age: 43 Year
  Sex: Female

DRUGS (4)
  1. BETASERON [Suspect]
     Dosage: 0.3 MG, UNK
     Dates: start: 2012
  2. VITAMIN D3 [Concomitant]
     Dosage: 400 U, UNK
  3. VITAMIN D [Concomitant]
     Dosage: 1000 U, UNK
  4. NAPROXEN [Concomitant]
     Dosage: 220 MG, UNK

REACTIONS (2)
  - Myalgia [Recovered/Resolved]
  - Musculoskeletal pain [Recovered/Resolved]
